FAERS Safety Report 10759699 (Version 2)
Quarter: 2015Q1

REPORT INFORMATION
  Report Type: Report from Study
  Country: JP (occurrence: JP)
  Receive Date: 20150203
  Receipt Date: 20150210
  Transmission Date: 20150721
  Serious: Yes (Hospitalization, Other)
  Sender: FDA-Public Use
  Company Number: PHHO2014JP009153

PATIENT
  Age: 73 Year
  Sex: Male
  Weight: 49 kg

DRUGS (13)
  1. BAYASPIRIN [Concomitant]
     Active Substance: ASPIRIN
     Indication: THROMBOSIS PROPHYLAXIS
     Dosage: 100 MG, UNK
     Route: 048
  2. ISCOTIN [Concomitant]
     Active Substance: ISONIAZID
     Indication: DIAGNOSTIC PROCEDURE
     Dosage: 100 MG, TID
     Route: 048
     Dates: start: 20130918, end: 20140805
  3. AIN457 [Suspect]
     Active Substance: SECUKINUMAB
     Indication: PUSTULAR PSORIASIS
     Dosage: 150MG, Q4W
     Route: 058
     Dates: start: 20131009, end: 20140709
  4. REZALTAS [Concomitant]
     Active Substance: AZELNIDIPINE\OLMESARTAN MEDOXOMIL
     Indication: HYPERTENSION
     Dosage: 10 MG, QD
     Route: 048
     Dates: start: 20120610
  5. BAYASPIRIN [Concomitant]
     Active Substance: ASPIRIN
     Dosage: 100 MG, QD
     Route: 048
     Dates: start: 20140214, end: 20150114
  6. SELARA [Concomitant]
     Active Substance: EPLERENONE
     Indication: HYPERTENSION
     Dosage: 50 MG, QD
     Route: 048
     Dates: start: 20120610
  7. LANTUS [Concomitant]
     Active Substance: INSULIN GLARGINE
     Indication: DIABETES MELLITUS
     Dosage: UNK UNK, QD
     Route: 058
     Dates: start: 20130327
  8. OLMETEC [Concomitant]
     Active Substance: OLMESARTAN MEDOXOMIL
     Indication: HYPERTENSION
     Dosage: 10 MG, QD
     Route: 048
     Dates: start: 20120610
  9. DOVONEX [Concomitant]
     Active Substance: CALCIPOTRIENE
     Indication: PUSTULAR PSORIASIS
     Dosage: Q.S., BID
     Route: 061
     Dates: start: 20130911
  10. MYSER [Concomitant]
     Active Substance: DIFLUPREDNATE
     Indication: PUSTULAR PSORIASIS
     Dosage: Q.S., BID
     Route: 061
     Dates: start: 20130911
  11. NOVORAPID [Concomitant]
     Active Substance: INSULIN ASPART
     Indication: DIABETES MELLITUS
     Dosage: UNK UNK, QD
     Route: 058
     Dates: start: 20130327
  12. MAGMITT [Concomitant]
     Active Substance: MAGNESIUM OXIDE
     Indication: CONSTIPATION PROPHYLAXIS
     Dosage: 330 MG, PRN
     Route: 048
     Dates: start: 20130612
  13. RINDERON V [Concomitant]
     Active Substance: BETAMETHASONE VALERATE
     Indication: PUSTULAR PSORIASIS
     Dosage: Q.S., BID
     Route: 061
     Dates: start: 20130911

REACTIONS (3)
  - Hepatic function abnormal [Recovered/Resolved]
  - Hypoglycaemia [Recovered/Resolved]
  - Upper gastrointestinal haemorrhage [Recovered/Resolved]

NARRATIVE: CASE EVENT DATE: 20140205
